FAERS Safety Report 13740900 (Version 1)
Quarter: 2017Q3

REPORT INFORMATION
  Report Type: Spontaneous
  Country: US (occurrence: US)
  Receive Date: 20170710
  Receipt Date: 20170710
  Transmission Date: 20171127
  Serious: No
  Sender: FDA-Public Use
  Company Number: None

PATIENT
  Age: 33 Year
  Sex: Female
  Weight: 63.9 kg

DRUGS (3)
  1. ACIPHEX [Concomitant]
     Active Substance: RABEPRAZOLE SODIUM
  2. XYZAL [Suspect]
     Active Substance: LEVOCETIRIZINE DIHYDROCHLORIDE
     Indication: SEASONAL ALLERGY
     Dosage: ?          OTHER STRENGTH:MG;QUANTITY:1 TABLET(S);?
     Route: 048
  3. BIOTIN [Concomitant]
     Active Substance: BIOTIN

REACTIONS (7)
  - Drug ineffective [None]
  - Contusion [None]
  - Eye pruritus [None]
  - Pruritus [None]
  - Scratch [None]
  - Feeling abnormal [None]
  - Rhinorrhoea [None]

NARRATIVE: CASE EVENT DATE: 20170710
